FAERS Safety Report 17068715 (Version 1)
Quarter: 2019Q4

REPORT INFORMATION
  Report Type: Spontaneous
  Country: RS (occurrence: RS)
  Receive Date: 20191123
  Receipt Date: 20191123
  Transmission Date: 20200122
  Serious: Yes (Other)
  Sender: FDA-Public Use
  Company Number: NVSC2019RS045463

PATIENT
  Age: 62 Year
  Sex: Female

DRUGS (5)
  1. PROPAFEN (PROPAFENONE) [Suspect]
     Active Substance: PROPAFENONE
     Indication: PRODUCT USED FOR UNKNOWN INDICATION
     Dosage: 150 MG, QD (ONCE IN THE MORNING)
     Route: 065
  2. MONODIPIN [Suspect]
     Active Substance: AMLODIPINE BESYLATE
     Indication: PRODUCT USED FOR UNKNOWN INDICATION
     Dosage: 5 MG, QD (ONCE IN THE EVENING)
     Route: 065
  3. FARIN [Suspect]
     Active Substance: WARFARIN
     Indication: INTERNATIONAL NORMALISED RATIO
     Dosage: 0.25 DF, QD
     Route: 065
  4. BYOL [Suspect]
     Active Substance: BISOPROLOL
     Indication: PRODUCT USED FOR UNKNOWN INDICATION
     Dosage: 2.5 MG, QD (ONCE IN THE MORNING)
     Route: 065
  5. LOSAR [LOSARTAN POTASSIUM] [Suspect]
     Active Substance: LOSARTAN POTASSIUM
     Indication: PRODUCT USED FOR UNKNOWN INDICATION
     Dosage: 100 MG, QD (ONCE IN THE EVENING)
     Route: 065

REACTIONS (11)
  - Palpitations [Unknown]
  - Gait disturbance [Unknown]
  - Gastrooesophageal reflux disease [Unknown]
  - Headache [Unknown]
  - Cardiomyopathy [Unknown]
  - Hiatus hernia [Unknown]
  - Blood cholesterol increased [Unknown]
  - Atrial fibrillation [Unknown]
  - Blood triglycerides increased [Unknown]
  - Blood pressure increased [Unknown]
  - Tinnitus [Unknown]
